FAERS Safety Report 8533659-8 (Version None)
Quarter: 2012Q3

REPORT INFORMATION
  Report Type: 
  Country: None (occurrence: None)
  Receive Date: 20120724
  Receipt Date: 20120720
  Transmission Date: 20120928
  Serious: No
  Sender: FDA-Public Use
  Company Number: US-PFIZER INC-2012176222

PATIENT
  Sex: Female
  Weight: 56.689 kg

DRUGS (2)
  1. ADVIL [Suspect]
     Indication: TOOTHACHE
     Dosage: 200 MG, UNK
     Route: 048
     Dates: start: 20120601
  2. ADVIL [Suspect]
     Dosage: UNK
     Route: 048
     Dates: start: 20120701

REACTIONS (2)
  - WRONG TECHNIQUE IN DRUG USAGE PROCESS [None]
  - DYSGEUSIA [None]
